FAERS Safety Report 4882006-1 (Version None)
Quarter: 2006Q1

REPORT INFORMATION
  Report Type: 
  Country: None (occurrence: None)
  Receive Date: 20060112
  Receipt Date: 20060103
  Transmission Date: 20060701
  Serious: Yes (Hospitalization)
  Sender: FDA-Public Use
  Company Number: FRWYE273703JAN06

PATIENT
  Age: 84 Year
  Sex: Female

DRUGS (8)
  1. EFFEXOR XR [Suspect]
     Dosage: 37.5 MG 1X PER 1 DAY ORAL
     Route: 048
     Dates: start: 20050929, end: 20051001
  2. ANAFRANIL [Suspect]
     Dosage: 50 MG TOTAL DAILY ORAL
     Route: 048
     Dates: start: 20050920, end: 20051001
  3. IMOVANE (ZOPICLONE, , 0) [Suspect]
     Dosage: 7.5 MG 1X PER 1 DAY ORAL
     Route: 048
     Dates: start: 20050920, end: 20051001
  4. OXAZEPAM [Suspect]
     Dosage: SEE IMAGE
     Route: 048
     Dates: start: 20050920, end: 20051001
  5. OXAZEPAM [Suspect]
     Dosage: SEE IMAGE
     Route: 048
     Dates: start: 20051002
  6. ZANIDIP (LERCANIDIPINE HYDROCHLORIDE, , 0) [Suspect]
     Dosage: 1 TABLET 1X PER 1 DAY ORAL
     Route: 048
  7. PRAVASTATIN [Concomitant]
  8. PREVISCAN (FLUINDIONE) [Concomitant]

REACTIONS (8)
  - ATRIAL FIBRILLATION [None]
  - DRUG INTERACTION [None]
  - DYSSTASIA [None]
  - EXTRAPYRAMIDAL DISORDER [None]
  - FALL [None]
  - HEAD INJURY [None]
  - ORTHOSTATIC HYPOTENSION [None]
  - SYNCOPE [None]
